FAERS Safety Report 5500566-4 (Version None)
Quarter: 2007Q4

REPORT INFORMATION
  Report Type: 
  Country: None (occurrence: None)
  Receive Date: 20071029
  Receipt Date: 20071017
  Transmission Date: 20080405
  Serious: Yes (Death, Other)
  Sender: FDA-Public Use
  Company Number: US-BRISTOL-MYERS SQUIBB COMPANY-13946116

PATIENT
  Sex: Female

DRUGS (6)
  1. CYCLOPHOSPHAMIDE [Suspect]
     Indication: CHEMOTHERAPY
  2. DOXORUBICIN HCL [Suspect]
     Indication: CHEMOTHERAPY
  3. VINCRISTINE SULFATE [Suspect]
     Indication: CHEMOTHERAPY
  4. NEULASTA [Suspect]
     Indication: PROPHYLACTIC CHEMOTHERAPY
  5. RITUXIMAB [Suspect]
     Indication: CHEMOTHERAPY
  6. PREDNISOLONE [Concomitant]

REACTIONS (2)
  - PULMONARY FIBROSIS [None]
  - RESPIRATORY FAILURE [None]
